FAERS Safety Report 11034044 (Version 2)
Quarter: 2015Q2

REPORT INFORMATION
  Report Type: Spontaneous
  Country: US (occurrence: US)
  Receive Date: 20150415
  Receipt Date: 20150525
  Transmission Date: 20150821
  Serious: Yes (Other)
  Sender: FDA-Public Use
  Company Number: US-JNJFOC-20140808918

PATIENT
  Age: 86 Year
  Sex: Female

DRUGS (6)
  1. XARELTO [Suspect]
     Active Substance: RIVAROXABAN
     Indication: HEART RATE IRREGULAR
     Route: 048
     Dates: end: 20140803
  2. XARELTO [Suspect]
     Active Substance: RIVAROXABAN
     Indication: CEREBROVASCULAR ACCIDENT PROPHYLAXIS
     Route: 048
     Dates: start: 20140804
  3. XARELTO [Suspect]
     Active Substance: RIVAROXABAN
     Indication: HEART RATE IRREGULAR
     Dosage: STARTED TAKING ABOUT A YEAR AGO
     Route: 048
  4. XARELTO [Suspect]
     Active Substance: RIVAROXABAN
     Indication: CEREBROVASCULAR ACCIDENT PROPHYLAXIS
     Dosage: STARTED TAKING ABOUT A YEAR AGO
     Route: 048
  5. XARELTO [Suspect]
     Active Substance: RIVAROXABAN
     Indication: CEREBROVASCULAR ACCIDENT PROPHYLAXIS
     Route: 048
     Dates: end: 20140803
  6. XARELTO [Suspect]
     Active Substance: RIVAROXABAN
     Indication: HEART RATE IRREGULAR
     Route: 048
     Dates: start: 20140804

REACTIONS (2)
  - Overdose [Unknown]
  - Rectal haemorrhage [Unknown]

NARRATIVE: CASE EVENT DATE: 20140803
